FAERS Safety Report 21000526 (Version 6)
Quarter: 2024Q1

REPORT INFORMATION
  Report Type: Report from Study
  Country: DE (occurrence: DE)
  Receive Date: 20220623
  Receipt Date: 20240212
  Transmission Date: 20240409
  Serious: Yes (Other)
  Sender: FDA-Public Use
  Company Number: DE-SA-SAC20220125000779

PATIENT
  Age: 57 Year
  Sex: Female
  Weight: 74 kg

DRUGS (26)
  1. DEXAMETHASONE [Suspect]
     Active Substance: DEXAMETHASONE
     Indication: Plasma cell myeloma refractory
     Dosage: 20 MG, DAY 1, 2, 8, 9
     Route: 065
     Dates: start: 20210610, end: 20210618
  2. DEXAMETHASONE [Suspect]
     Active Substance: DEXAMETHASONE
     Dosage: 20 MG, DAY 1, 1 TIME
     Route: 065
     Dates: start: 20210805, end: 20210805
  3. DEXAMETHASONE [Suspect]
     Active Substance: DEXAMETHASONE
     Dosage: 20 MG, 2 TIMES 15, 16
     Route: 065
     Dates: start: 20210818, end: 20210819
  4. CARFILZOMIB [Suspect]
     Active Substance: CARFILZOMIB
     Indication: Plasma cell myeloma refractory
     Dosage: 37 MG, 2TIMES: DAY 1, 2
     Route: 065
     Dates: start: 20210610, end: 20210611
  5. CARFILZOMIB [Suspect]
     Active Substance: CARFILZOMIB
     Dosage: 105 MG, 2 TIMES: DAY 8,9
     Route: 065
     Dates: start: 20210617, end: 20210618
  6. CARFILZOMIB [Suspect]
     Active Substance: CARFILZOMIB
     Dosage: 105 MG, 1 TIMES: DAY 1
     Route: 065
     Dates: start: 20210805, end: 20210805
  7. ISATUXIMAB [Suspect]
     Active Substance: ISATUXIMAB
     Indication: Plasma cell myeloma refractory
     Dosage: 740 MG, QW, DAY 1, 8, 15
     Route: 065
     Dates: start: 20210610, end: 20210623
  8. ISATUXIMAB [Suspect]
     Active Substance: ISATUXIMAB
     Dosage: 740 MG, BIW
     Route: 065
     Dates: start: 20220323, end: 20220406
  9. ISATUXIMAB [Suspect]
     Active Substance: ISATUXIMAB
     Dosage: 740 MG, BIW
     Route: 065
     Dates: start: 20210805, end: 20210818
  10. ISATUXIMAB [Suspect]
     Active Substance: ISATUXIMAB
     Dosage: 740 MG, BIW
     Route: 065
     Dates: start: 20220223, end: 20220309
  11. ISATUXIMAB [Suspect]
     Active Substance: ISATUXIMAB
     Dosage: 740 MG, BIW
     Route: 065
     Dates: start: 20211229, end: 20220112
  12. ISATUXIMAB [Suspect]
     Active Substance: ISATUXIMAB
     Dosage: 740 MG, BIW
     Route: 065
     Dates: start: 20220628, end: 20220712
  13. ISATUXIMAB [Suspect]
     Active Substance: ISATUXIMAB
     Dosage: 740 MG, BIW
     Route: 065
     Dates: start: 20210901, end: 20210915
  14. ISATUXIMAB [Suspect]
     Active Substance: ISATUXIMAB
     Dosage: 740 MG, BIW
     Route: 065
     Dates: start: 20211124, end: 20211208
  15. ISATUXIMAB [Suspect]
     Active Substance: ISATUXIMAB
     Dosage: 740 MG, BIW
     Route: 065
     Dates: start: 20220531, end: 20220614
  16. ISATUXIMAB [Suspect]
     Active Substance: ISATUXIMAB
     Dosage: 740 MG, BIW
     Route: 065
     Dates: start: 20220126, end: 20220209
  17. ISATUXIMAB [Suspect]
     Active Substance: ISATUXIMAB
     Dosage: 740 MG, BIW
     Route: 065
     Dates: start: 20211027, end: 20211110
  18. ISATUXIMAB [Suspect]
     Active Substance: ISATUXIMAB
     Dosage: 740 MG, BIW
     Route: 065
     Dates: start: 20220420, end: 20220504
  19. ISATUXIMAB [Suspect]
     Active Substance: ISATUXIMAB
     Dosage: 740 MG, BIW
     Route: 065
     Dates: start: 20210929, end: 20211013
  20. ISATUXIMAB [Suspect]
     Active Substance: ISATUXIMAB
     Dosage: 740 MG, BIW
     Route: 065
     Dates: start: 20220726, end: 20220726
  21. ISATUXIMAB [Suspect]
     Active Substance: ISATUXIMAB
     Dosage: 740 MG, QW
     Route: 065
     Dates: start: 20210630, end: 20210630
  22. MONTELUKAST [Concomitant]
     Active Substance: MONTELUKAST SODIUM
     Indication: Prophylaxis
     Dosage: UNK, QCY
     Dates: start: 20210610, end: 20220726
  23. ZOMETA [Concomitant]
     Active Substance: ZOLEDRONIC ACID
     Indication: Hypercalcaemia
     Dosage: UNK, EVERY 4 WEEKS
     Dates: start: 20161011
  24. CLEMASTINE [Concomitant]
     Active Substance: CLEMASTINE
     Indication: Prophylaxis of nausea and vomiting
     Dosage: UNK, QCY
     Dates: start: 20210610, end: 20220727
  25. PARACODIN N [Concomitant]
     Indication: Bronchitis
     Dosage: UNK
     Dates: start: 20220628
  26. OCTAGAM IMMUNE GLOBULIN (HUMAN) [Concomitant]
     Active Substance: HUMAN IMMUNOGLOBULIN G
     Indication: Prophylaxis
     Dosage: 20 G
     Dates: start: 20220629, end: 20220629

REACTIONS (6)
  - Thrombocytopenia [Recovered/Resolved]
  - Infusion related reaction [Recovered/Resolved]
  - Fatigue [Unknown]
  - Oedema peripheral [Recovered/Resolved]
  - Peripheral sensory neuropathy [Not Recovered/Not Resolved]
  - Headache [Recovered/Resolved]

NARRATIVE: CASE EVENT DATE: 20210610
